FAERS Safety Report 9918723 (Version 3)
Quarter: 2015Q4

REPORT INFORMATION
  Report Type: Report from Study
  Country: US (occurrence: US)
  Receive Date: 20140224
  Receipt Date: 20151124
  Transmission Date: 20160305
  Serious: Yes (Other)
  Sender: FDA-Public Use
  Company Number: US-ROCHE-1336835

PATIENT
  Age: 58 Year
  Sex: Female

DRUGS (8)
  1. AVASTIN [Suspect]
     Active Substance: BEVACIZUMAB
     Indication: PRODUCT USED FOR UNKNOWN INDICATION
     Route: 065
  2. XALATAN [Concomitant]
     Active Substance: LATANOPROST
  3. TRIAMCINOLONE ACETONIDE. [Concomitant]
     Active Substance: TRIAMCINOLONE ACETONIDE
     Route: 050
  4. LUCENTIS [Suspect]
     Active Substance: RANIBIZUMAB
     Indication: MACULAR DEGENERATION
     Route: 050
     Dates: start: 2011
  5. TIMOLOL. [Concomitant]
     Active Substance: TIMOLOL
  6. DORZOLAMIDE [Concomitant]
     Active Substance: DORZOLAMIDE
     Dosage: BID OU
     Route: 065
  7. LUCENTIS [Suspect]
     Active Substance: RANIBIZUMAB
     Indication: DIABETIC RETINOPATHY
  8. LATANOPROST. [Concomitant]
     Active Substance: LATANOPROST
     Dosage: QHS OU
     Route: 065

REACTIONS (4)
  - Vision blurred [Unknown]
  - Macular oedema [Unknown]
  - Vitreous floaters [Not Recovered/Not Resolved]
  - Drug ineffective [Unknown]

NARRATIVE: CASE EVENT DATE: 20110711
